FAERS Safety Report 12958783 (Version 1)
Quarter: 2016Q4

REPORT INFORMATION
  Report Type: Report from Study
  Country: US (occurrence: US)
  Receive Date: 20161121
  Receipt Date: 20161121
  Transmission Date: 20170207
  Serious: Yes (Other)
  Sender: FDA-Public Use
  Company Number: US-GILEAD-2016-0244165

PATIENT
  Age: 72 Year
  Sex: Female

DRUGS (1)
  1. AMBRISENTAN [Suspect]
     Active Substance: AMBRISENTAN
     Indication: PULMONARY HYPERTENSION
     Dosage: 10 MG, QD
     Route: 065
     Dates: start: 20140321

REACTIONS (6)
  - Influenza [Unknown]
  - Viral infection [Unknown]
  - Vomiting [Not Recovered/Not Resolved]
  - Liver function test increased [Recovering/Resolving]
  - Liver disorder [Unknown]
  - Malaise [Unknown]

NARRATIVE: CASE EVENT DATE: 201610
